FAERS Safety Report 10846810 (Version 2)
Quarter: 2015Q1

REPORT INFORMATION
  Report Type: Spontaneous
  Country: IL (occurrence: IL)
  Receive Date: 20150220
  Receipt Date: 20150305
  Transmission Date: 20150721
  Serious: Yes (Hospitalization, Other)
  Sender: FDA-Public Use
  Company Number: IL-BAYER-2015-024827

PATIENT
  Age: 79 Year
  Sex: Female
  Weight: 55 kg

DRUGS (12)
  1. ASPIRIN. [Suspect]
     Active Substance: ASPIRIN
     Dosage: 100 MG, QD
  2. EPANUTIN [Concomitant]
     Active Substance: PHENYTOIN SODIUM
     Indication: SEIZURE
     Dosage: 100 MG, QD
  3. PHENYTOIN. [Concomitant]
     Active Substance: PHENYTOIN
     Dosage: UNK, UNK
  4. XARELTO [Suspect]
     Active Substance: RIVAROXABAN
     Indication: EMBOLISM VENOUS
  5. PREDNISONE. [Concomitant]
     Active Substance: PREDNISONE
     Indication: PNEUMONIA
     Dosage: DAILY DOSE 30 MG
  6. XARELTO [Suspect]
     Active Substance: RIVAROXABAN
     Indication: DEEP VEIN THROMBOSIS
     Dosage: 15 MG, QD
     Dates: start: 2013, end: 20150217
  7. SIRAN [Concomitant]
     Indication: COUGH
  8. FUSID [Concomitant]
     Active Substance: FUROSEMIDE
     Dosage: 40 MG, QD
  9. LANTUS [Concomitant]
     Active Substance: INSULIN GLARGINE
     Indication: DIABETES MELLITUS
  10. NIFEDIPINE. [Concomitant]
     Active Substance: NIFEDIPINE
     Dosage: 60 MG, QD
  11. VENTOLIN [Concomitant]
     Active Substance: ALBUTEROL SULFATE
     Indication: CHRONIC OBSTRUCTIVE PULMONARY DISEASE
  12. OPTALGIN [Concomitant]
     Active Substance: METAMIZOLE
     Dosage: UNK UNK, PRN

REACTIONS (8)
  - Acute kidney injury [Recovered/Resolved]
  - International normalised ratio increased [Recovered/Resolved]
  - Blood creatinine increased [Recovered/Resolved]
  - Pyrexia [Recovered/Resolved]
  - Cough [Recovered/Resolved]
  - Leukocytosis [Recovered/Resolved]
  - Abdominal pain [Unknown]
  - Pneumonia [Recovered/Resolved]

NARRATIVE: CASE EVENT DATE: 201502
